FAERS Safety Report 6819969-0 (Version None)
Quarter: 2010Q3

REPORT INFORMATION
  Report Type: 
  Country: None (occurrence: None)
  Receive Date: 20100707
  Receipt Date: 20100629
  Transmission Date: 20110219
  Serious: Yes (Other)
  Sender: FDA-Public Use
  Company Number: US-ROCHE-712297

PATIENT
  Age: 66 Year
  Sex: Male

DRUGS (2)
  1. AVASTIN [Suspect]
     Route: 031
  2. LUCENTIS [Suspect]
     Route: 031

REACTIONS (2)
  - INFLAMMATION [None]
  - INTRAOCULAR PRESSURE INCREASED [None]
